FAERS Safety Report 10056766 (Version 1)
Quarter: 2014Q2

REPORT INFORMATION
  Report Type: Report from Study
  Country: JP (occurrence: JP)
  Receive Date: 20140403
  Receipt Date: 20140403
  Transmission Date: 20141212
  Serious: Yes (Hospitalization)
  Sender: FDA-Public Use
  Company Number: JP-GLAXOSMITHKLINE-B0911091A

PATIENT
  Age: 80 Year
  Sex: Female
  Weight: 62 kg

DRUGS (13)
  1. TYKERB [Suspect]
     Indication: BREAST CANCER
     Route: 048
     Dates: start: 20121116
  2. XELODA [Suspect]
     Indication: BREAST CANCER
     Route: 048
     Dates: start: 20121116
  3. RANMARK [Concomitant]
     Indication: OSTEOPOROSIS
     Route: 058
     Dates: start: 20121116
  4. ONEALFA [Concomitant]
     Indication: OSTEOPOROSIS
     Route: 048
  5. XYZAL [Concomitant]
     Indication: ASTEATOSIS
     Route: 048
  6. PROTECADIN [Concomitant]
     Indication: PROPHYLAXIS
     Route: 048
  7. DRENISON [Concomitant]
     Indication: ASTEATOSIS
     Route: 061
  8. PREDONINE [Concomitant]
     Indication: ASTEATOSIS
     Route: 048
  9. DIFLAL [Concomitant]
     Indication: ECZEMA
     Route: 061
     Dates: end: 20130118
  10. FLOMOX [Concomitant]
     Indication: ORAL NEOPLASM
     Route: 048
     Dates: start: 20130107, end: 20130109
  11. SOLETON [Concomitant]
     Indication: ORAL NEOPLASM
     Route: 048
     Dates: start: 20130107, end: 20130109
  12. ANTEBATE [Concomitant]
     Indication: ASTEATOSIS
     Route: 061
     Dates: start: 20130201
  13. AZUNOL [Concomitant]
     Indication: PROPHYLAXIS
     Route: 002

REACTIONS (4)
  - Femur fracture [Recovering/Resolving]
  - Deep vein thrombosis [Recovered/Resolved]
  - Stomatitis [Recovered/Resolved]
  - Skin fissures [Recovering/Resolving]
